FAERS Safety Report 9705702 (Version 1)
Quarter: 2013Q4

REPORT INFORMATION
  Report Type: Spontaneous
  Country: US (occurrence: US)
  Receive Date: 20131122
  Receipt Date: 20131122
  Transmission Date: 20140711
  Serious: No
  Sender: FDA-Public Use
  Company Number: US-GILEAD-2008-0017692

PATIENT
  Sex: Female

DRUGS (15)
  1. LETAIRIS [Suspect]
     Indication: PULMONARY HYPERTENSION
     Route: 048
     Dates: start: 20080222
  2. SPIRONOLACTONE [Concomitant]
     Indication: SWELLING
     Route: 048
  3. SPIRONOLACTONE [Concomitant]
     Indication: BLOOD PRESSURE
  4. ALBUTEROL [Concomitant]
     Indication: ASTHMA
     Route: 048
  5. ALBUTEROL [Concomitant]
     Indication: PULMONARY ARTERIAL HYPERTENSION
  6. ADVAIR [Concomitant]
     Indication: ASTHMA
     Route: 048
  7. ADVAIR [Concomitant]
     Indication: PULMONARY ARTERIAL HYPERTENSION
  8. LASIX [Concomitant]
     Indication: SWELLING
     Route: 048
  9. LASIX [Concomitant]
     Indication: BLOOD PRESSURE
  10. WARFARIN [Concomitant]
     Indication: ANTICOAGULANT THERAPY
     Route: 048
  11. PREDNISONE [Concomitant]
     Indication: ASTHMA
     Route: 048
  12. PREDNISONE [Concomitant]
     Indication: INFLAMMATION
  13. CLONAZEPAM [Concomitant]
     Indication: ANXIETY
     Route: 048
  14. VICODIN [Concomitant]
     Indication: PAIN IN EXTREMITY
     Route: 048
  15. DOXYCYCLINE [Concomitant]
     Route: 048

REACTIONS (2)
  - Pain in extremity [Not Recovered/Not Resolved]
  - Local swelling [Not Recovered/Not Resolved]
